FAERS Safety Report 7154003-7 (Version None)
Quarter: 2010Q4

REPORT INFORMATION
  Report Type: 
  Country: None (occurrence: None)
  Receive Date: 20101213
  Receipt Date: 20101201
  Transmission Date: 20110411
  Serious: Yes (Hospitalization)
  Sender: FDA-Public Use
  Company Number: ZA-B.I. PHARMACEUTICALS,INC./RIDGEFIELD-2010-ZA-00085ZA

PATIENT
  Sex: Female
  Weight: 70 kg

DRUGS (7)
  1. TIOTROPIUM BROMIDE [Suspect]
     Indication: ASTHMA
     Dosage: 5 MCG
     Route: 055
     Dates: start: 20091127, end: 20101012
  2. SALBUTAMOL [Suspect]
     Indication: ASTHMA
     Dosage: 600 MCG
     Route: 055
     Dates: start: 20090101
  3. NUELIN [Concomitant]
     Indication: ASTHMA
     Dosage: 400 MG
     Route: 048
     Dates: start: 20080101
  4. PHARMAPRESS [Concomitant]
     Indication: HYPERTENSION
     Dosage: 10 MG
     Route: 048
     Dates: start: 20080101
  5. RIDAQ [Concomitant]
     Indication: HYPERTENSION
     Dosage: 12.5 MG
     Route: 048
     Dates: start: 20080101
  6. BUDEFLAM [Concomitant]
     Indication: ASTHMA
     Dosage: 800 MCG
     Route: 055
     Dates: start: 20040101
  7. FORATEC [Concomitant]
     Indication: ASTHMA
     Dosage: 24 MCG
     Route: 055
     Dates: start: 20080101

REACTIONS (1)
  - ASTHMA [None]
